FAERS Safety Report 19171339 (Version 2)
Quarter: 2021Q3

REPORT INFORMATION
  Report Type: Spontaneous
  Country: US (occurrence: US)
  Receive Date: 20210423
  Receipt Date: 20210910
  Transmission Date: 20211014
  Serious: No
  Sender: FDA-Public Use
  Company Number: US-SA-2021SA132835

PATIENT
  Sex: Female

DRUGS (3)
  1. DUEXIS [Concomitant]
     Active Substance: FAMOTIDINE\IBUPROFEN
  2. DUPIXENT [Suspect]
     Active Substance: DUPILUMAB
     Indication: DERMATITIS ATOPIC
     Dosage: 300 MG, QOW
     Route: 058
     Dates: end: 2021
  3. MODERNA COVID?19 VACCINE [Suspect]
     Active Substance: CX-024414
     Indication: COVID-19 IMMUNISATION

REACTIONS (5)
  - Pyrexia [Unknown]
  - Feeling abnormal [Unknown]
  - Swelling face [Recovered/Resolved]
  - Erythema [Recovered/Resolved]
  - Therapy interrupted [Unknown]

NARRATIVE: CASE EVENT DATE: 2021
